FAERS Safety Report 4780787-9 (Version None)
Quarter: 2005Q3

REPORT INFORMATION
  Report Type: 
  Country: None (occurrence: None)
  Receive Date: 20050927
  Receipt Date: 20041203
  Transmission Date: 20060218
  Serious: Yes (Hospitalization)
  Sender: FDA-Public Use
  Company Number: US-MERCK-0412USA00635

PATIENT
  Sex: Male
  Weight: 86 kg

DRUGS (3)
  1. VIOXX [Suspect]
     Indication: RHEUMATOID ARTHRITIS
     Route: 048
     Dates: start: 20021012, end: 20050727
  2. VIOXX [Suspect]
     Indication: ARTHRITIS
     Route: 048
     Dates: start: 20021012, end: 20050727
  3. ASPIRIN [Concomitant]
     Route: 065

REACTIONS (3)
  - CATARACT [None]
  - CEREBROVASCULAR ACCIDENT [None]
  - SENSORY LOSS [None]
